FAERS Safety Report 8420972-8 (Version None)
Quarter: 2012Q2

REPORT INFORMATION
  Report Type: 
  Country: None (occurrence: None)
  Receive Date: 20120608
  Receipt Date: 20120605
  Transmission Date: 20120825
  Serious: Yes (Death)
  Sender: FDA-Public Use
  Company Number: IN-ELI_LILLY_AND_COMPANY-IN201206001422

PATIENT
  Age: 55 Year
  Sex: Female

DRUGS (3)
  1. VENIZ XR [Concomitant]
     Dosage: 37.5 MG, UNK
  2. COVANCE [Concomitant]
     Dosage: 50 MG, UNK
  3. HUMALOG MIX 75/25 [Suspect]
     Indication: DIABETES MELLITUS
     Dosage: UNK, UNKNOWN
     Route: 058

REACTIONS (1)
  - CARDIAC ARREST [None]
